FAERS Safety Report 7206070-X (Version None)
Quarter: 2011Q1

REPORT INFORMATION
  Report Type: 
  Country: None (occurrence: None)
  Receive Date: 20110103
  Receipt Date: 20101220
  Transmission Date: 20110831
  Serious: Yes (Other)
  Sender: FDA-Public Use
  Company Number: TR-RANBAXY-2010RR-40759

PATIENT
  Age: 9 Year
  Sex: Male

DRUGS (4)
  1. CLINDAMYCIN [Suspect]
  2. AMPICILLIN AND SULBACTAM [Suspect]
  3. CEFIXIME [Suspect]
  4. AMIKACIN [Suspect]

REACTIONS (1)
  - ACUTE GENERALISED EXANTHEMATOUS PUSTULOSIS [None]
